FAERS Safety Report 14047033 (Version 1)
Quarter: 2017Q4

REPORT INFORMATION
  Report Type: Spontaneous
  Country: JP (occurrence: JP)
  Receive Date: 20171005
  Receipt Date: 20171005
  Transmission Date: 20180321
  Serious: Yes (Other)
  Sender: FDA-Public Use
  Company Number: JP-BAYER-2017-184019

PATIENT
  Age: 82 Year
  Sex: Male

DRUGS (3)
  1. XOFIGO [Suspect]
     Active Substance: RADIUM RA-223 DICHLORIDE
     Indication: PROSTATE CANCER
     Dosage: 55KB/KG ONCE
     Route: 042
     Dates: start: 20170922, end: 20170922
  2. XOFIGO [Suspect]
     Active Substance: RADIUM RA-223 DICHLORIDE
     Indication: PROSTATE CANCER
     Dosage: 55KB/KG, QD
     Route: 042
     Dates: start: 20170731, end: 20170731
  3. ESTRADIOL. [Suspect]
     Active Substance: ESTRADIOL

REACTIONS (2)
  - Rash [None]
  - Gastric cancer [None]

NARRATIVE: CASE EVENT DATE: 20170920
